FAERS Safety Report 4779632-7 (Version None)
Quarter: 2005Q3

REPORT INFORMATION
  Report Type: 
  Country: None (occurrence: None)
  Receive Date: 20050927
  Receipt Date: 20050913
  Transmission Date: 20060218
  Serious: Yes (Hospitalization, Disabling, Other)
  Sender: FDA-Public Use
  Company Number: 2005SE05177

PATIENT
  Age: 23852 Day
  Sex: Female

DRUGS (10)
  1. NOLVADEX [Suspect]
     Indication: BREAST CANCER
     Route: 048
     Dates: start: 19980720, end: 20010510
  2. DUROFERON [Concomitant]
  3. TRIOBE [Concomitant]
  4. CITALOPRAM [Concomitant]
  5. HEMINEVRIN [Concomitant]
  6. ALVEDON [Concomitant]
  7. KALCIDON [Concomitant]
  8. OXYCONTIN [Concomitant]
  9. MOVICOL [Concomitant]
  10. OXYNORM [Concomitant]

REACTIONS (1)
  - FEMUR FRACTURE [None]
